FAERS Safety Report 6187889-3 (Version None)
Quarter: 2009Q2

REPORT INFORMATION
  Report Type: 
  Country: None (occurrence: None)
  Receive Date: 20090511
  Receipt Date: 20090511
  Transmission Date: 20091009
  Serious: No
  Sender: FDA-Public Use
  Company Number: None

PATIENT
  Sex: Male

DRUGS (1)
  1. AMOXICILLIN [Suspect]
     Dosage: 800MG TWICE DAILY ORAL
     Route: 048
     Dates: start: 20090423, end: 20090501

REACTIONS (1)
  - RASH PAPULAR [None]
